FAERS Safety Report 25512658 (Version 1)
Quarter: 2025Q3

REPORT INFORMATION
  Report Type: Spontaneous
  Country: US (occurrence: US)
  Receive Date: 20250703
  Receipt Date: 20250703
  Transmission Date: 20251020
  Serious: No
  Sender: RADIUS PHARM
  Company Number: US-RADIUS HEALTH INC.-2024US008307

PATIENT
  Sex: Female

DRUGS (3)
  1. TYMLOS [Suspect]
     Active Substance: ABALOPARATIDE
     Indication: Senile osteoporosis
     Route: 058
     Dates: start: 20240716
  2. TYMLOS [Suspect]
     Active Substance: ABALOPARATIDE
     Indication: Pathological fracture
  3. Calcium plus vitamin D supplement [Concomitant]
     Indication: Product used for unknown indication

REACTIONS (6)
  - Loss of personal independence in daily activities [Not Recovered/Not Resolved]
  - Bone pain [Not Recovered/Not Resolved]
  - Diarrhoea [Not Recovered/Not Resolved]
  - Headache [Not Recovered/Not Resolved]
  - Arthralgia [Not Recovered/Not Resolved]
  - Product dose omission issue [Unknown]
